FAERS Safety Report 9334938 (Version 1)
Quarter: 2013Q2

REPORT INFORMATION
  Report Type: Spontaneous
  Country: US (occurrence: US)
  Receive Date: 20130606
  Receipt Date: 20130606
  Transmission Date: 20140414
  Serious: No
  Sender: FDA-Public Use
  Company Number: US-PFIZER INC-2013171991

PATIENT
  Sex: Female

DRUGS (1)
  1. LYRICA [Suspect]
     Indication: NEURALGIA
     Dosage: 50 MG (BY TAKING TWO CAPSULES OF 25MG), 1X/DAY
     Route: 048
     Dates: start: 201303

REACTIONS (1)
  - Dizziness [Unknown]
